FAERS Safety Report 20454057 (Version 1)
Quarter: 2022Q1

REPORT INFORMATION
  Report Type: Spontaneous
  Country: US (occurrence: US)
  Receive Date: 20220210
  Receipt Date: 20220210
  Transmission Date: 20220423
  Serious: No
  Sender: FDA-Public Use
  Company Number: US-CELGENE-USA-20220201416

PATIENT
  Sex: Male
  Weight: 74.97 kg

DRUGS (2)
  1. REVLIMID [Suspect]
     Active Substance: LENALIDOMIDE
     Indication: Plasma cell myeloma
     Dosage: 25 MILLIGRAM
     Route: 048
     Dates: start: 20220115
  2. ASPIRIN [Concomitant]
     Active Substance: ASPIRIN
     Indication: Product used for unknown indication
     Route: 065

REACTIONS (6)
  - Injection site rash [Unknown]
  - Night sweats [Unknown]
  - Constipation [Unknown]
  - Insomnia [Unknown]
  - Headache [Unknown]
  - Decreased appetite [Unknown]
